FAERS Safety Report 25471316 (Version 2)
Quarter: 2025Q3

REPORT INFORMATION
  Report Type: Report from Study
  Country: US (occurrence: US)
  Receive Date: 20250624
  Receipt Date: 20250701
  Transmission Date: 20251021
  Serious: Yes (Hospitalization)
  Sender: ABBVIE
  Company Number: US-ABBVIE-6336862

PATIENT
  Age: 66 Year
  Sex: Female
  Weight: 52.163 kg

DRUGS (7)
  1. SKYRIZI [Suspect]
     Active Substance: RISANKIZUMAB-RZAA
     Indication: Crohn^s disease
     Route: 058
     Dates: start: 20241126
  2. SKYRIZI [Suspect]
     Active Substance: RISANKIZUMAB-RZAA
     Route: 058
     Dates: start: 20250415
  3. SKYRIZI [Suspect]
     Active Substance: RISANKIZUMAB-RZAA
     Route: 058
     Dates: start: 20241126
  4. BENTYL [Concomitant]
     Active Substance: DICYCLOMINE HYDROCHLORIDE
     Indication: Diarrhoea
     Dosage: AS NEEDED
     Route: 048
  5. ACETAMINOPHEN [Concomitant]
     Active Substance: ACETAMINOPHEN
     Indication: Pain
     Dosage: AS NEEDED
  6. ELIQUIS [Concomitant]
     Active Substance: APIXABAN
     Indication: Product used for unknown indication
     Dosage: FOR 7 DAYS
     Route: 048
     Dates: start: 20250522
  7. PREMARIN [Concomitant]
     Active Substance: ESTROGENS, CONJUGATED
     Indication: Product used for unknown indication

REACTIONS (8)
  - Thrombosis [Unknown]
  - Pain in extremity [Unknown]
  - Gait disturbance [Unknown]
  - Pain in extremity [Unknown]
  - Dyspnoea [Unknown]
  - Pulmonary embolism [Unknown]
  - Discomfort [Unknown]
  - Muscle strain [Unknown]

NARRATIVE: CASE EVENT DATE: 20250501
